FAERS Safety Report 6106449-3 (Version None)
Quarter: 2009Q1

REPORT INFORMATION
  Report Type: 
  Country: None (occurrence: None)
  Receive Date: 20090306
  Receipt Date: 20090302
  Transmission Date: 20090719
  Serious: Yes (Hospitalization)
  Sender: FDA-Public Use
  Company Number: FR-SANOFI-SYNTHELABO-F01200801545

PATIENT
  Sex: Male
  Weight: 55 kg

DRUGS (3)
  1. CAPECITABINE [Suspect]
     Route: 048
  2. RADIOTHERAPY [Suspect]
     Dates: start: 20080602
  3. OXALIPLATIN [Suspect]
     Indication: RECTAL CANCER
     Route: 041

REACTIONS (1)
  - PELVIC ABSCESS [None]
